FAERS Safety Report 6227323-8 (Version None)
Quarter: 2009Q2

REPORT INFORMATION
  Report Type: 
  Country: None (occurrence: None)
  Receive Date: 20090612
  Receipt Date: 20090604
  Transmission Date: 20091009
  Serious: Yes (Death)
  Sender: FDA-Public Use
  Company Number: US-MYLANLABS-2009S1007974

PATIENT
  Age: 82 Year
  Sex: Female

DRUGS (10)
  1. FENTANYL TRANSDERMAL SYSTEM [Suspect]
     Indication: DIABETIC NEUROPATHY
     Dosage: Q72HR
     Route: 062
     Dates: start: 20081201, end: 20081201
  2. FENTANYL TRANSDERMAL SYSTEM [Suspect]
     Indication: PAIN
     Dosage: Q72HR
     Route: 062
     Dates: start: 20081201, end: 20081201
  3. FENTANYL TRANSDERMAL SYSTEM [Suspect]
     Indication: PAIN IN EXTREMITY
     Dosage: Q72HR
     Route: 062
     Dates: start: 20081201, end: 20081201
  4. PRANDIN /01393601/ [Concomitant]
  5. METFORMIN HYDROCHLORIDE [Concomitant]
  6. ALLOPURINOL [Concomitant]
  7. METOPROLOL SUCCINATE [Concomitant]
  8. FUROSEMIDE [Concomitant]
  9. COZAAR [Concomitant]
  10. FLUOXETINE HCL [Concomitant]

REACTIONS (1)
  - PNEUMONIA STAPHYLOCOCCAL [None]
